FAERS Safety Report 4383517-8 (Version None)
Quarter: 2004Q2

REPORT INFORMATION
  Report Type: 
  Country: None (occurrence: None)
  Receive Date: 20040618
  Receipt Date: 20040611
  Transmission Date: 20050107
  Serious: Yes (Other)
  Sender: FDA-Public Use
  Company Number: 2004218490JP

PATIENT
  Age: 12 Year
  Sex: Male

DRUGS (2)
  1. GENOTROPIN [Suspect]
     Indication: HYPOPITUITARISM
     Dosage: 0.8 MG, QD, SUBCUTANEOUS
     Route: 058
     Dates: start: 20031021
  2. DEPAKENE [Concomitant]

REACTIONS (1)
  - NEPHROTIC SYNDROME [None]
